FAERS Safety Report 8011016-0 (Version None)
Quarter: 2011Q4

REPORT INFORMATION
  Report Type: 
  Country: None (occurrence: None)
  Receive Date: 20111228
  Receipt Date: 20111219
  Transmission Date: 20120403
  Serious: Yes (Hospitalization)
  Sender: FDA-Public Use
  Company Number: GR-ELI_LILLY_AND_COMPANY-GR201112001131

PATIENT
  Age: 43 Year
  Sex: Male

DRUGS (3)
  1. RISPERDAL [Concomitant]
     Indication: PSYCHOTIC DISORDER
     Dosage: 2 MG, QD
     Route: 048
  2. OLANZAPINE [Suspect]
     Indication: PSYCHOTIC DISORDER
     Dosage: 300 MG, UNK
     Route: 030
     Dates: start: 20111118
  3. AKINETON [Concomitant]
     Indication: PSYCHOTIC DISORDER
     Dosage: 2 MG, QD
     Route: 048

REACTIONS (4)
  - FALL [None]
  - EXTRAPYRAMIDAL DISORDER [None]
  - MUSCLE RIGIDITY [None]
  - OCULOGYRIC CRISIS [None]
